FAERS Safety Report 4627118-2 (Version None)
Quarter: 2005Q2

REPORT INFORMATION
  Report Type: 
  Country: None (occurrence: None)
  Receive Date: 20050405
  Receipt Date: 20040128
  Transmission Date: 20051028
  Serious: Yes (Hospitalization)
  Sender: FDA-Public Use
  Company Number: US-ROCHE-357657

PATIENT
  Sex: Female
  Weight: 5.3 kg

DRUGS (4)
  1. KLONOPIN [Suspect]
     Indication: PANIC DISORDER
     Dates: start: 20031015, end: 20040129
  2. VALIUM [Suspect]
     Indication: ANXIETY
     Dates: end: 20040115
  3. ZYPREXA [Concomitant]
     Indication: MAJOR DEPRESSION
  4. PAXIL [Concomitant]
     Indication: OBSESSIVE-COMPULSIVE DISORDER

REACTIONS (7)
  - APGAR SCORE LOW [None]
  - CAESAREAN SECTION [None]
  - DRUG EXPOSURE DURING PREGNANCY [None]
  - FEEDING PROBLEM IN NEWBORN [None]
  - GESTATIONAL DIABETES [None]
  - PRE-ECLAMPSIA [None]
  - PREGNANCY [None]
